FAERS Safety Report 9599000 (Version 2)
Quarter: 2013Q4

REPORT INFORMATION
  Report Type: Spontaneous
  Country: US (occurrence: US)
  Receive Date: 20131004
  Receipt Date: 20131004
  Transmission Date: 20140711
  Serious: No
  Sender: FDA-Public Use
  Company Number: US-AMGEN-USASP2013023075

PATIENT
  Age: 57 Year
  Sex: Female
  Weight: 64 kg

DRUGS (8)
  1. ENBREL [Suspect]
     Indication: RHEUMATOID ARTHRITIS
     Dosage: 50 MG, QWK
     Route: 058
  2. ARAVA [Suspect]
     Indication: RHEUMATOID ARTHRITIS
     Dosage: 10 G, QD
     Route: 048
     Dates: start: 20091001, end: 20130101
  3. CELEBREX [Concomitant]
     Dosage: 400 MG, UNK
  4. PREMARIN [Concomitant]
     Dosage: 0.45 MG, UNK
  5. VITAMIN D                          /00107901/ [Concomitant]
     Dosage: 400 UNIT, UNK
  6. BIOTIN [Concomitant]
     Dosage: 5000 UNK, UNK
  7. MULTIVITAMINS, PLAIN [Concomitant]
     Dosage: UNK
  8. VITAMIN E                          /00110501/ [Concomitant]
     Dosage: UNK, BAR

REACTIONS (1)
  - Psoriasis [Recovered/Resolved]
